FAERS Safety Report 9246179 (Version 1)
Quarter: 2013Q2

REPORT INFORMATION
  Report Type: Spontaneous
  Country: SG (occurrence: SG)
  Receive Date: 20130422
  Receipt Date: 20130422
  Transmission Date: 20140414
  Serious: Yes (Hospitalization)
  Sender: FDA-Public Use
  Company Number: SG-MYLANLABS-2013S1007815

PATIENT
  Age: 11 Year
  Sex: Female

DRUGS (12)
  1. CICLOSPORIN [Suspect]
     Indication: PROPHYLAXIS AGAINST GRAFT VERSUS HOST DISEASE
     Route: 065
  2. CICLOSPORIN [Suspect]
     Indication: GRAFT VERSUS HOST DISEASE IN SKIN
     Route: 065
  3. CICLOSPORIN [Suspect]
     Indication: PROPHYLAXIS AGAINST GRAFT VERSUS HOST DISEASE
     Route: 048
  4. CICLOSPORIN [Suspect]
     Indication: GRAFT VERSUS HOST DISEASE IN SKIN
     Route: 048
  5. MYCOPHENOLATE MOFETIL [Suspect]
     Indication: GRAFT VERSUS HOST DISEASE IN SKIN
     Route: 048
  6. PREDNISOLONE [Concomitant]
     Indication: OBSTRUCTIVE AIRWAYS DISORDER
     Route: 048
  7. IBUPROFEN [Concomitant]
     Indication: OBSTRUCTIVE AIRWAYS DISORDER
     Route: 065
  8. DEFERASIROX [Concomitant]
     Indication: HAEMOSIDEROSIS
     Route: 065
  9. METHOTREXATE [Concomitant]
     Indication: PROPHYLAXIS AGAINST GRAFT VERSUS HOST DISEASE
     Route: 065
  10. PEGFILGRASTIM [Concomitant]
     Indication: PROPHYLAXIS AGAINST GRAFT VERSUS HOST DISEASE
     Dosage: 4MG (0.14MG/KG) SINGLE DOSE ON DAY 2 AFTER TRANSPLANT
     Route: 065
  11. METHYLPREDNISOLONE [Concomitant]
     Indication: GRAFT VERSUS HOST DISEASE IN SKIN
     Dosage: 2MG/KG/DAY
     Route: 042
  12. METHYLPREDNISOLONE [Concomitant]
     Indication: SYSTEMIC LUPUS ERYTHEMATOSUS
     Dosage: INTERMITTENT PULSE THERAPY
     Route: 042

REACTIONS (2)
  - Posterior reversible encephalopathy syndrome [Recovering/Resolving]
  - Gastroduodenitis [Recovered/Resolved]
